FAERS Safety Report 10247575 (Version 1)
Quarter: 2014Q1

REPORT INFORMATION
  Report Type: Spontaneous
  Country: US (occurrence: None)
  Receive Date: 20140306
  Receipt Date: 20140306
  Transmission Date: 20141002
  Serious: Yes (Hospitalization)
  Sender: FDA-Public Use
  Company Number: 163-21880-13044118

PATIENT
  Age: 80 Year
  Sex: Female
  Weight: 81.1 kg

DRUGS (1)
  1. REVLIMID (LENALIDOMIDE) (10 MILLIGRAM, CAPSULES) [Suspect]
     Indication: MYELODYSPLASTIC SYNDROME
     Route: 048
     Dates: start: 20090326

REACTIONS (5)
  - Vertigo [None]
  - Diarrhoea [None]
  - Hypokalaemia [None]
  - Dehydration [None]
  - Neutropenia [None]
